FAERS Safety Report 25062351 (Version 1)
Quarter: 2025Q1

REPORT INFORMATION
  Report Type: Spontaneous
  Country: US (occurrence: US)
  Receive Date: 20250311
  Receipt Date: 20250311
  Transmission Date: 20250409
  Serious: Yes (Other)
  Sender: ALEXION PHARMACEUTICALS
  Company Number: US-AstraZeneca-CH-00820334A

PATIENT

DRUGS (2)
  1. BEVESPI AEROSPHERE [Suspect]
     Active Substance: FORMOTEROL FUMARATE\GLYCOPYRROLATE
     Indication: Chronic obstructive pulmonary disease
     Route: 065
  2. SYMBICORT [Suspect]
     Active Substance: BUDESONIDE\FORMOTEROL FUMARATE DIHYDRATE
     Route: 065

REACTIONS (11)
  - Wrong technique in device usage process [Unknown]
  - Skin burning sensation [Unknown]
  - Skin tightness [Unknown]
  - Eye irritation [Unknown]
  - Accidental exposure to product [Unknown]
  - Pain [Unknown]
  - Osteoporosis [Unknown]
  - Arthralgia [Unknown]
  - Bone pain [Unknown]
  - Oxygen saturation decreased [Unknown]
  - Product dose omission issue [Unknown]
